FAERS Safety Report 24800936 (Version 1)
Quarter: 2025Q1

REPORT INFORMATION
  Report Type: Spontaneous
  Country: US (occurrence: None)
  Receive Date: 20250102
  Receipt Date: 20250102
  Transmission Date: 20250409
  Serious: Yes (unspecified)
  Sender: FDA-CTU
  Company Number: None

PATIENT
  Age: 66 Year
  Sex: Male
  Weight: 66.1 kg

DRUGS (4)
  1. CAPECITABINE [Suspect]
     Active Substance: CAPECITABINE
     Indication: Pancreatic carcinoma
     Dosage: FREQUENCY : TWICE A DAY;?
     Route: 048
     Dates: start: 20241217
  2. GEMCITABINE [Suspect]
     Active Substance: GEMCITABINE
  3. ABRAXANE [Suspect]
     Active Substance: PACLITAXEL
  4. RADIATION THERAPY [Suspect]
     Active Substance: RADIATION THERAPY

REACTIONS (12)
  - Pancytopenia [None]
  - Weight decreased [None]
  - Decreased appetite [None]
  - Diarrhoea [None]
  - Asthenia [None]
  - Dyspnoea [None]
  - Oedema [None]
  - Confusional state [None]
  - Hallucination [None]
  - Neuropathy peripheral [None]
  - Loss of personal independence in daily activities [None]
  - Gait disturbance [None]

NARRATIVE: CASE EVENT DATE: 20241220
